FAERS Safety Report 5609408-X (Version None)
Quarter: 2008Q1

REPORT INFORMATION
  Report Type: 
  Country: None (occurrence: None)
  Receive Date: 20080131
  Receipt Date: 20080123
  Transmission Date: 20080703
  Serious: Yes (Hospitalization)
  Sender: FDA-Public Use
  Company Number: DE-SANOFI-SYNTHELABO-A01200800909

PATIENT
  Age: 73 Year
  Sex: Male

DRUGS (1)
  1. ELIGARD [Suspect]
     Indication: BENIGN PROSTATIC HYPERPLASIA
     Dosage: UNK
     Route: 058
     Dates: start: 20050713, end: 20050713

REACTIONS (3)
  - HOT FLUSH [None]
  - HYPOAESTHESIA [None]
  - LOSS OF CONTROL OF LEGS [None]
